FAERS Safety Report 17804546 (Version 6)
Quarter: 2020Q4

REPORT INFORMATION
  Report Type: Report from Study
  Country: None (occurrence: US)
  Receive Date: 20200519
  Receipt Date: 20201221
  Transmission Date: 20210113
  Serious: Yes (Other)
  Sender: FDA-Public Use
  Company Number: US-ABBVIE-20K-163-3402658-00

PATIENT
  Age: 69 Year
  Sex: Female
  Weight: 86.26 kg

DRUGS (3)
  1. RINVOQ [Suspect]
     Active Substance: UPADACITINIB
     Indication: RHEUMATOID ARTHRITIS
     Route: 048
     Dates: start: 202002, end: 20200512
  2. SYNTHROID [Concomitant]
     Active Substance: LEVOTHYROXINE SODIUM
     Indication: HYPOTHYROIDISM
  3. EFFEXOR [Concomitant]
     Active Substance: VENLAFAXINE HYDROCHLORIDE
     Indication: FIBROMYALGIA

REACTIONS (9)
  - Macular fibrosis [Recovering/Resolving]
  - Visual impairment [Not Recovered/Not Resolved]
  - Procedural pain [Not Recovered/Not Resolved]
  - Asthenia [Unknown]
  - Rheumatoid arthritis [Unknown]
  - Retinal detachment [Recovering/Resolving]
  - Retinal detachment [Recovering/Resolving]
  - Cataract [Unknown]
  - Macular hole [Recovered/Resolved]

NARRATIVE: CASE EVENT DATE: 2020
